FAERS Safety Report 5728841-9 (Version None)
Quarter: 2008Q2

REPORT INFORMATION
  Report Type: 
  Country: None (occurrence: None)
  Receive Date: 20080506
  Receipt Date: 20080424
  Transmission Date: 20081010
  Serious: Yes (Death, Hospitalization)
  Sender: FDA-Public Use
  Company Number: DK-ELI_LILLY_AND_COMPANY-DK200804006393

PATIENT
  Sex: Female

DRUGS (5)
  1. FORTEO [Suspect]
     Indication: OSTEOPOROSIS
     Dosage: 20 UG, DAILY (1/D)
     Route: 058
  2. PAMOL [Concomitant]
     Indication: PAIN
     Dosage: 1 G, EACH EVENING
     Dates: end: 20080420
  3. CEFUROXIME [Concomitant]
     Indication: CYSTITIS
     Dosage: 1500 MG, 3/D
     Route: 065
     Dates: start: 20080329, end: 20080404
  4. DIAZEPAM [Concomitant]
     Indication: CONVULSION
     Dosage: 10 MG, EACH EVENING
     Route: 065
     Dates: start: 20080403, end: 20080420
  5. MORPHINE [Concomitant]
     Indication: PAIN
     Dosage: 20 MG, EACH EVENING
     Route: 065
     Dates: start: 20080403, end: 20080420

REACTIONS (3)
  - CEREBRAL HAEMORRHAGE [None]
  - DEATH [None]
  - HEMIPLEGIA [None]
